FAERS Safety Report 8897836 (Version 2)
Quarter: 2012Q4

REPORT INFORMATION
  Report Type: 
  Country: JP (occurrence: JP)
  Receive Date: 20121109
  Receipt Date: 20121217
  Transmission Date: 20130627
  Serious: Yes (Other)
  Sender: FDA-Public Use
  Company Number: JP-ELI_LILLY_AND_COMPANY-JP201210010232

PATIENT

DRUGS (2)
  1. GEMZAR [Suspect]
     Indication: BILE DUCT CANCER
     Dosage: 1000 mg/m2, other
     Route: 013
  2. 5-FU [Concomitant]
     Indication: BILE DUCT CANCER
     Dosage: 400 mg/m2, other
     Route: 013

REACTIONS (2)
  - Liver abscess [Recovering/Resolving]
  - Incorrect route of drug administration [Unknown]
